FAERS Safety Report 5833993-6 (Version None)
Quarter: 2008Q3

REPORT INFORMATION
  Report Type: 
  Country: None (occurrence: None)
  Receive Date: 20080801
  Receipt Date: 20080801
  Transmission Date: 20090109
  Serious: Yes (Disabling)
  Sender: FDA-Public Use
  Company Number: None

PATIENT
  Age: 46 Year
  Sex: Female
  Weight: 104.3273 kg

DRUGS (1)
  1. DURAGESIC-50 [Suspect]
     Indication: PAIN
     Dosage: 50 EVERY 72 HOURS
     Dates: start: 20040701, end: 20080717

REACTIONS (3)
  - CONVULSION [None]
  - DRUG DEPENDENCE [None]
  - DRUG INEFFECTIVE [None]
